FAERS Safety Report 25742346 (Version 1)
Quarter: 2025Q3

REPORT INFORMATION
  Report Type: Spontaneous
  Country: RU (occurrence: RU)
  Receive Date: 20250829
  Receipt Date: 20250829
  Transmission Date: 20251020
  Serious: Yes (Other)
  Sender: BAUSCH AND LOMB
  Company Number: RU-BAUSCH-BH-2025-016817

PATIENT
  Age: 34 Year
  Sex: Male

DRUGS (6)
  1. RIFAXIMIN [Suspect]
     Active Substance: RIFAXIMIN
     Indication: Detoxification
     Route: 048
     Dates: start: 2024
  2. SODIUM CHLORIDE [Concomitant]
     Active Substance: SODIUM CHLORIDE
     Indication: Detoxification
     Dosage: IV ONCE A DAY IN THE MORNING
     Route: 042
  3. DEXTROSE [Concomitant]
     Active Substance: DEXTROSE MONOHYDRATE
     Indication: Detoxification
     Dosage: IV ONCE A DAY IN THE MORNING
     Route: 042
  4. OMEPRAZOLE LYOPHILISATE FOR SOLUTION FOR INFUSIONS 40 MG [Concomitant]
     Indication: Detoxification
     Dosage: ONCE IN THE MORNING
     Route: 042
     Dates: start: 202406
  5. OMEPRAZOLE [Concomitant]
     Active Substance: OMEPRAZOLE
     Indication: Detoxification
     Route: 048
     Dates: start: 202406
  6. LACTULOSE [Concomitant]
     Active Substance: LACTULOSE
     Indication: Detoxification
     Route: 048
     Dates: start: 202406

REACTIONS (3)
  - Hepatic encephalopathy [Recovering/Resolving]
  - Acute kidney injury [Recovering/Resolving]
  - Off label use [Recovered/Resolved]

NARRATIVE: CASE EVENT DATE: 20240101
